FAERS Safety Report 21530171 (Version 1)
Quarter: 2022Q4

REPORT INFORMATION
  Report Type: Report from Study
  Country: CA (occurrence: CA)
  Receive Date: 20221031
  Receipt Date: 20221031
  Transmission Date: 20230113
  Serious: Yes (Life-Threatening, Other)
  Sender: FDA-Public Use
  Company Number: CA-NOVARTISPH-NVSC2022CA212743

PATIENT
  Sex: Male

DRUGS (2)
  1. KESIMPTA [Suspect]
     Active Substance: OFATUMUMAB
     Indication: Relapsing-remitting multiple sclerosis
     Dosage: UNK
     Route: 058
     Dates: start: 20220830
  2. KESIMPTA [Suspect]
     Active Substance: OFATUMUMAB
     Dosage: UNK
     Route: 065
     Dates: start: 20220928

REACTIONS (12)
  - Suicidal ideation [Unknown]
  - Hemiparaesthesia [Unknown]
  - Spinal pain [Unknown]
  - Hypoaesthesia [Unknown]
  - Pain in extremity [Unknown]
  - Feeling abnormal [Unknown]
  - Sluggishness [Unknown]
  - Neck pain [Unknown]
  - Coccydynia [Unknown]
  - Balance disorder [Unknown]
  - Arthralgia [Unknown]
  - Drug effect less than expected [Unknown]
